FAERS Safety Report 9698033 (Version 1)
Quarter: 2013Q4

REPORT INFORMATION
  Report Type: Spontaneous
  Country: GB (occurrence: GB)
  Receive Date: 20131120
  Receipt Date: 20131120
  Transmission Date: 20140711
  Serious: Yes (Other)
  Sender: FDA-Public Use
  Company Number: PHHY2013GB132055

PATIENT
  Sex: Male

DRUGS (1)
  1. ATORVASTATIN [Suspect]
     Dosage: 40 MG, UNK

REACTIONS (6)
  - Cardiac disorder [Unknown]
  - Influenza like illness [Unknown]
  - Blood cholesterol abnormal [Unknown]
  - Eye pain [Unknown]
  - Pruritus [Unknown]
  - Dyspepsia [Unknown]
